FAERS Safety Report 9028214 (Version 1)
Quarter: 2013Q1

REPORT INFORMATION
  Report Type: Spontaneous
  Country: US (occurrence: None)
  Receive Date: 20130115
  Receipt Date: 20130115
  Transmission Date: 20140127
  Serious: No
  Sender: FDA-Public Use
  Company Number: None

PATIENT
  Age: 62 Year
  Sex: Female
  Weight: 53.07 kg

DRUGS (2)
  1. PAXIL [Suspect]
     Dosage: 1/2 TABLET
     Route: 048
     Dates: start: 19900301, end: 20130112
  2. VIIBRYD [Suspect]
     Dates: start: 20120927, end: 20121126

REACTIONS (1)
  - Cough [None]
